FAERS Safety Report 25532936 (Version 1)
Quarter: 2025Q3

REPORT INFORMATION
  Report Type: Spontaneous
  Country: US (occurrence: US)
  Receive Date: 20250709
  Receipt Date: 20250709
  Transmission Date: 20251021
  Serious: No
  Sender: ABBVIE
  Company Number: US-ABBVIE-6355907

PATIENT
  Age: 61 Year
  Sex: Female

DRUGS (1)
  1. SAVELLA [Suspect]
     Active Substance: MILNACIPRAN HYDROCHLORIDE
     Indication: Product used for unknown indication
     Route: 048

REACTIONS (11)
  - Gastric dilatation [Not Recovered/Not Resolved]
  - Diarrhoea [Unknown]
  - Decreased appetite [Unknown]
  - Constipation [Not Recovered/Not Resolved]
  - Abdominal pain upper [Unknown]
  - Fibromyalgia [Unknown]
  - Gluteus medius syndrome [Unknown]
  - Pain [Recovered/Resolved]
  - Abdominal distension [Unknown]
  - Intentional product misuse [Unknown]
  - Sciatica [Unknown]

NARRATIVE: CASE EVENT DATE: 20250602
